FAERS Safety Report 6407104-2 (Version None)
Quarter: 2009Q4

REPORT INFORMATION
  Report Type: 
  Country: None (occurrence: None)
  Receive Date: 20091020
  Receipt Date: 20091013
  Transmission Date: 20100525
  Serious: Yes (Hospitalization, Disabling, Congenital Anomaly, Other)
  Sender: FDA-Public Use
  Company Number: GB-B.I. PHARMACEUTICALS,INC./RIDGEFIELD-2009-UK-00635UK

PATIENT
  Sex: Female
  Weight: 2.2 kg

DRUGS (7)
  1. TIPRANAVIR+RITONAVIR CO-ADMIN (EU/1/05/315/001) [Suspect]
     Indication: DRUG EXPOSURE DURING PREGNANCY
     Route: 064
     Dates: start: 20070605, end: 20081001
  2. TRUVADA [Suspect]
     Indication: DRUG EXPOSURE DURING PREGNANCY
     Route: 064
     Dates: start: 20070605, end: 20081001
  3. RITONAVIR [Concomitant]
     Indication: ANTIRETROVIRAL THERAPY
     Dosage: 800 MG
     Route: 064
     Dates: start: 20081023
  4. ETRAVIRINE [Concomitant]
     Indication: ANTIRETROVIRAL THERAPY
     Dosage: 400 MG
     Route: 064
     Dates: start: 20081023
  5. RALTEGRAVIR [Concomitant]
     Indication: ANTIRETROVIRAL THERAPY
     Dosage: 200 MG
     Route: 064
     Dates: start: 20081023
  6. DARUNAVIR [Concomitant]
     Indication: ANTIRETROVIRAL THERAPY
     Dosage: 1200 MG
     Route: 064
     Dates: start: 20081023
  7. PREDNISOLONE [Concomitant]

REACTIONS (11)
  - BLOOD IRON DECREASED [None]
  - CAUDAL REGRESSION SYNDROME [None]
  - CLOACAL EXSTROPHY [None]
  - CONGENITAL MUSCULOSKELETAL ANOMALY [None]
  - EXOMPHALOS [None]
  - GASTROINTESTINAL DISORDER CONGENITAL [None]
  - GENITALIA EXTERNAL AMBIGUOUS [None]
  - LIPODYSTROPHY ACQUIRED [None]
  - MECONIUM STAIN [None]
  - MENINGOMYELOCELE [None]
  - UMBILICAL CORD ABNORMALITY [None]
